FAERS Safety Report 4277884-3 (Version None)
Quarter: 2004Q1

REPORT INFORMATION
  Report Type: 
  Country: None (occurrence: None)
  Receive Date: 20040115
  Receipt Date: 20031231
  Transmission Date: 20041129
  Serious: Yes (Other)
  Sender: FDA-Public Use
  Company Number: A0490879A

PATIENT
  Age: 55 Year
  Sex: Female

DRUGS (1)
  1. NICORETTE [Suspect]
     Indication: EX-SMOKER
     Dosage: 2 MG TRANSBUCCAL
     Route: 002
     Dates: start: 20010101

REACTIONS (3)
  - DEPENDENCE [None]
  - DRUG EFFECT DECREASED [None]
  - IRRITABILITY [None]
